FAERS Safety Report 5650413-5 (Version None)
Quarter: 2008Q1

REPORT INFORMATION
  Report Type: 
  Country: None (occurrence: None)
  Receive Date: 20080305
  Receipt Date: 20080224
  Transmission Date: 20080703
  Serious: Yes (Other)
  Sender: FDA-Public Use
  Company Number: US-JNJFOC-20080206553

PATIENT
  Sex: Female
  Weight: 68.04 kg

DRUGS (13)
  1. FENTANYL TRANSDERMAL SYSTEM [Suspect]
     Indication: PAIN
     Route: 062
  2. EFFEXOR XR [Suspect]
     Indication: DEPRESSION
     Route: 048
  3. NEXIUM [Concomitant]
     Indication: DRUG USE FOR UNKNOWN INDICATION
     Route: 048
  4. ALLEGRA [Concomitant]
     Indication: MULTIPLE ALLERGIES
     Route: 048
  5. ATIVAN [Concomitant]
     Indication: DRUG USE FOR UNKNOWN INDICATION
     Route: 048
  6. ZOCOR [Concomitant]
     Route: 048
  7. LIDODERM [Concomitant]
     Indication: BACK DISORDER
     Route: 062
  8. SKELAXIN [Concomitant]
     Indication: PAIN
     Route: 048
  9. FLEXERIL [Concomitant]
     Indication: PAIN
     Route: 048
  10. ATACAND [Concomitant]
     Route: 048
  11. TOPROL [Concomitant]
     Route: 048
  12. NORVASC [Concomitant]
     Route: 048
  13. CELEBREX [Concomitant]
     Indication: DRUG USE FOR UNKNOWN INDICATION
     Route: 048

REACTIONS (10)
  - AMNESIA [None]
  - CONFUSIONAL STATE [None]
  - FEELING ABNORMAL [None]
  - FLUSHING [None]
  - HALLUCINATION [None]
  - HYPERHIDROSIS [None]
  - HYPERSOMNIA [None]
  - INAPPROPRIATE SCHEDULE OF DRUG ADMINISTRATION [None]
  - OVERDOSE [None]
  - SUICIDE ATTEMPT [None]
